FAERS Safety Report 20256054 (Version 1)
Quarter: 2021Q4

REPORT INFORMATION
  Report Type: Spontaneous
  Country: US (occurrence: None)
  Receive Date: 20211229
  Receipt Date: 20211229
  Transmission Date: 20220303
  Serious: Yes (Hospitalization)
  Sender: FDA-Public Use
  Company Number: None

PATIENT
  Age: 81 Year
  Sex: Male
  Weight: 66.2 kg

DRUGS (2)
  1. PEMBROLIZUMAB [Suspect]
     Active Substance: PEMBROLIZUMAB
     Dates: end: 20211012
  2. ALIMTA [Suspect]
     Active Substance: PEMETREXED DISODIUM
     Dates: end: 20211012

REACTIONS (9)
  - Epistaxis [None]
  - Dyspnoea [None]
  - Pleural effusion [None]
  - Atelectasis [None]
  - Productive cough [None]
  - Ventricular fibrillation [None]
  - Pneumonia [None]
  - Asthenia [None]
  - Disease progression [None]

NARRATIVE: CASE EVENT DATE: 20211117
